FAERS Safety Report 18178187 (Version 1)
Quarter: 2020Q3

REPORT INFORMATION
  Report Type: Spontaneous
  Country: ES (occurrence: ES)
  Receive Date: 20200821
  Receipt Date: 20200821
  Transmission Date: 20201103
  Serious: Yes (Other)
  Sender: FDA-Public Use
  Company Number: ES-AUROBINDO-AUR-APL-2020-040300

PATIENT
  Age: 2 Year
  Sex: Male
  Weight: 7 kg

DRUGS (2)
  1. TEICOPLANIN [Suspect]
     Active Substance: TEICOPLANIN
     Indication: INTESTINAL PSEUDO-OBSTRUCTION
     Dosage: 70 MILLIGRAM, TWO TIMES A DAY
     Route: 042
     Dates: start: 20191223, end: 20191227
  2. MEROPENEM. [Suspect]
     Active Substance: MEROPENEM
     Indication: INTESTINAL PSEUDO-OBSTRUCTION
     Dosage: 140 MILLIGRAM, 3 TIMES A DAY
     Route: 042
     Dates: start: 20191223, end: 20191226

REACTIONS (1)
  - Hepatitis [Recovered/Resolved]

NARRATIVE: CASE EVENT DATE: 20191229
